FAERS Safety Report 19300829 (Version 1)
Quarter: 2021Q2

REPORT INFORMATION
  Report Type: Spontaneous
  Country: US (occurrence: US)
  Receive Date: 20210524
  Receipt Date: 20210524
  Transmission Date: 20210717
  Serious: No
  Sender: FDA-Public Use
  Company Number: US-SA-2021SA171313

PATIENT
  Sex: Male

DRUGS (2)
  1. CLARITIN [Concomitant]
     Active Substance: LORATADINE
     Dosage: UNK
  2. XYZAL ALLERGY 24HR [Suspect]
     Active Substance: LEVOCETIRIZINE DIHYDROCHLORIDE
     Indication: PERENNIAL ALLERGY
     Dosage: UNK

REACTIONS (4)
  - Cough [Unknown]
  - Lacrimation increased [Unknown]
  - Therapeutic response shortened [Unknown]
  - Rhinorrhoea [Unknown]
